FAERS Safety Report 16206398 (Version 1)
Quarter: 2019Q2

REPORT INFORMATION
  Report Type: Report from Study
  Country: TN (occurrence: TN)
  Receive Date: 20190417
  Receipt Date: 20190417
  Transmission Date: 20190711
  Serious: Yes (Death, Hospitalization)
  Sender: FDA-Public Use
  Company Number: TN-SA-2019SA105269

PATIENT
  Age: 71 Year
  Sex: Female

DRUGS (5)
  1. CLOPIDOGREL BISULFATE. [Suspect]
     Active Substance: CLOPIDOGREL BISULFATE
     Dosage: 1 DF, QD
     Route: 048
     Dates: start: 20181108, end: 20190323
  2. ASPEGIC [ACETYLSALICYLIC ACID] [Concomitant]
     Dosage: UNK UNK, UNK
     Route: 065
  3. CINCOR [Concomitant]
     Dosage: UNK UNK, UNK
     Route: 065
  4. ATOR [Concomitant]
     Active Substance: ATORVASTATIN CALCIUM
     Dosage: UNK UNK, UNK
     Route: 065
  5. GLUCOPHAGE [Concomitant]
     Active Substance: METFORMIN HYDROCHLORIDE
     Dosage: UNK UNK, UNK
     Route: 065

REACTIONS (2)
  - Lung infection [Fatal]
  - Bronchitis [Fatal]

NARRATIVE: CASE EVENT DATE: 201812
